FAERS Safety Report 6146662-2 (Version None)
Quarter: 2009Q2

REPORT INFORMATION
  Report Type: 
  Country: None (occurrence: None)
  Receive Date: 20090407
  Receipt Date: 20090330
  Transmission Date: 20091009
  Serious: Yes (Other)
  Sender: FDA-Public Use
  Company Number: US-ELI_LILLY_AND_COMPANY-US200903001206

PATIENT
  Sex: Male
  Weight: 92.517 kg

DRUGS (6)
  1. HUMALOG [Suspect]
     Dosage: 8 U, EACH MORNING
  2. HUMALOG [Suspect]
     Dosage: 8 U, OTHER
  3. HUMALOG [Suspect]
     Dosage: 10 U, EACH EVENING
  4. HUMULIN 70/30 [Suspect]
  5. PLAVIX [Concomitant]
  6. LANTUS [Concomitant]
     Dosage: UNK, EACH EVENING

REACTIONS (5)
  - CEREBROVASCULAR ACCIDENT [None]
  - COGNITIVE DISORDER [None]
  - EYE DISORDER [None]
  - MOBILITY DECREASED [None]
  - VISUAL FIELD DEFECT [None]
